FAERS Safety Report 4380350-8 (Version None)
Quarter: 2004Q2

REPORT INFORMATION
  Report Type: 
  Country: None (occurrence: None)
  Receive Date: 20040614
  Receipt Date: 20040601
  Transmission Date: 20050107
  Serious: Yes (Hospitalization, Other)
  Sender: FDA-Public Use
  Company Number: 2004036823

PATIENT

DRUGS (1)
  1. ZYRTEC [Suspect]
     Indication: PRURITUS
     Dosage: ORAL
     Route: 048
     Dates: start: 20040101, end: 20040101

REACTIONS (4)
  - HEPATIC CIRRHOSIS [None]
  - PRURITUS [None]
  - PYREXIA [None]
  - RHABDOMYOLYSIS [None]
